FAERS Safety Report 9513239 (Version 2)
Quarter: 2014Q1

REPORT INFORMATION
  Report Type: Spontaneous
  Country: US (occurrence: None)
  Receive Date: 20130305
  Receipt Date: 20140306
  Transmission Date: 20141002
  Serious: Yes (Other)
  Sender: FDA-Public Use
  Company Number: 163-21880-12102534

PATIENT
  Age: 78 Year
  Sex: Female

DRUGS (5)
  1. REVLIMID [Suspect]
     Indication: PLASMA CELL MYELOMA
     Dosage: 25 MG, 21 IN 21 D, PO
     Route: 048
     Dates: start: 20101119, end: 2011
  2. NITROFURANTOIN [Concomitant]
  3. ZOMETA (ZOLEDRONIC ACID) [Concomitant]
  4. DEXAMETHASONE [Concomitant]
  5. ANTIBIOTICS [Concomitant]

REACTIONS (2)
  - Blood potassium decreased [None]
  - Diarrhoea [None]
